FAERS Safety Report 9435659 (Version 1)
Quarter: 2013Q3

REPORT INFORMATION
  Report Type: Spontaneous
  Country: US (occurrence: None)
  Receive Date: 20130730
  Receipt Date: 20130730
  Transmission Date: 20140515
  Serious: Yes (Death, Other)
  Sender: FDA-Public Use
  Company Number: 2013AP006868

PATIENT
  Age: 65 Year
  Sex: Male

DRUGS (4)
  1. LEVETIRACETAM TABLETS [Suspect]
     Indication: CONVULSION
     Route: 048
  2. CIPROFLOXACIN [Suspect]
     Indication: CELLULITIS
  3. TEMOZOLOMIDE [Suspect]
     Indication: GLIOBLASTOMA MULTIFORME
  4. CEFALEXIN [Suspect]
     Indication: CELLULITIS
     Dosage: 200 MG, QD

REACTIONS (3)
  - Drug-induced liver injury [None]
  - Cholestasis [None]
  - Gastrointestinal haemorrhage [None]
